FAERS Safety Report 6903596-0 (Version None)
Quarter: 2010Q3

REPORT INFORMATION
  Report Type: 
  Country: None (occurrence: None)
  Receive Date: 20100803
  Receipt Date: 20081028
  Transmission Date: 20110219
  Serious: No
  Sender: FDA-Public Use
  Company Number: US-PFIZER INC-2008081917

PATIENT
  Sex: Male

DRUGS (6)
  1. LYRICA [Suspect]
  2. GABAPENTIN [Suspect]
  3. CARBAMAZEPINE [Suspect]
  4. LIDOCAINE [Suspect]
  5. XYLOCAINE [Suspect]
  6. OXYCODONE [Suspect]

REACTIONS (6)
  - DIZZINESS [None]
  - DRUG INEFFECTIVE [None]
  - FALL [None]
  - PYREXIA [None]
  - VERTIGO [None]
  - VISUAL ACUITY REDUCED [None]
